FAERS Safety Report 19699089 (Version 3)
Quarter: 2021Q3

REPORT INFORMATION
  Report Type: Spontaneous
  Country: US (occurrence: US)
  Receive Date: 20210813
  Receipt Date: 20210826
  Transmission Date: 20211014
  Serious: Yes (Death, Hospitalization, Other)
  Sender: FDA-Public Use
  Company Number: US-PFIZER INC-202100989740

PATIENT
  Age: 86 Year
  Sex: Male
  Weight: 68.04 kg

DRUGS (4)
  1. VYNDAMAX [Suspect]
     Active Substance: TAFAMIDIS
     Dosage: UNK, 1X/DAY
     Dates: start: 201912
  2. VYNDAMAX [Suspect]
     Active Substance: TAFAMIDIS
     Indication: CARDIAC AMYLOIDOSIS
     Dosage: 61 MG, 1X/DAY
     Dates: start: 201911
  3. AMLODIPINE BESILATE [Concomitant]
     Active Substance: AMLODIPINE BESYLATE
     Indication: HYPERTENSION
     Dosage: UNK
  4. ASPIRINE [Concomitant]
     Active Substance: ASPIRIN
     Dosage: UNK (FOUR TIMES A WEEKS)

REACTIONS (9)
  - Dizziness [Unknown]
  - Cardiac arrest [Fatal]
  - Heart valve incompetence [Unknown]
  - Poor quality sleep [Unknown]
  - Cardiac failure congestive [Fatal]
  - Fatigue [Unknown]
  - Cardiac amyloidosis [Fatal]
  - Disease progression [Fatal]
  - Fluid overload [Unknown]

NARRATIVE: CASE EVENT DATE: 2019
